FAERS Safety Report 5226968-1 (Version None)
Quarter: 2007Q1

REPORT INFORMATION
  Report Type: 
  Country: None (occurrence: None)
  Receive Date: 20070201
  Receipt Date: 20070201
  Transmission Date: 20070707
  Serious: No
  Sender: FDA-Public Use
  Company Number: None

PATIENT
  Age: 10 Year
  Sex: Female
  Weight: 29 kg

DRUGS (1)
  1. METRONIDAZOLE 250MG TAB [Suspect]
     Indication: CLOSTRIDIAL INFECTION
     Dosage: 250MG Q6HRS PO
     Route: 048
     Dates: start: 20061209, end: 20061212

REACTIONS (3)
  - PRURITUS [None]
  - RASH GENERALISED [None]
  - URTICARIA [None]
